FAERS Safety Report 5920224-1 (Version None)
Quarter: 2008Q4

REPORT INFORMATION
  Report Type: 
  Country: None (occurrence: None)
  Receive Date: 20081016
  Receipt Date: 20080306
  Transmission Date: 20090506
  Serious: No
  Sender: FDA-Public Use
  Company Number: A0713836A

PATIENT
  Age: 9 Year
  Sex: Male

DRUGS (2)
  1. CEFTIN [Suspect]
     Dosage: 1.25TSP TWICE PER DAY
     Route: 048
     Dates: start: 20080229
  2. NO CONCURRENT MEDICATION [Concomitant]

REACTIONS (1)
  - HEADACHE [None]
